FAERS Safety Report 4265030-1 (Version None)
Quarter: 2004Q1

REPORT INFORMATION
  Report Type: 
  Country: None (occurrence: None)
  Receive Date: 20040105
  Receipt Date: 20031218
  Transmission Date: 20041129
  Serious: Yes (Death)
  Sender: FDA-Public Use
  Company Number: STA-AE-03-MTX-195

PATIENT
  Age: 75 Year
  Sex: Female

DRUGS (3)
  1. METHOTREXATE [Suspect]
     Indication: RHEUMATOID ARTHRITIS
     Dosage: 12.5 TO 15 MG PER WEEK, ORAL
     Route: 048
     Dates: start: 19970701, end: 19990101
  2. METHOTREXATE [Suspect]
     Indication: RHEUMATOID ARTHRITIS
     Dosage: 12.5 TO 15 MG EVERY FOUR WEEKS, INJECTION
     Dates: start: 19970701, end: 19990101
  3. FOLIC ACID [Concomitant]

REACTIONS (2)
  - LYMPHOPENIA [None]
  - PNEUMONIA PNEUMOCOCCAL [None]
